FAERS Safety Report 22969529 (Version 2)
Quarter: 2023Q4

REPORT INFORMATION
  Report Type: Spontaneous
  Country: GB (occurrence: GB)
  Receive Date: 20230922
  Receipt Date: 20231010
  Transmission Date: 20240110
  Serious: Yes (Death, Other)
  Sender: FDA-Public Use
  Company Number: GB-SANDOZ-SDZ2023GB032192

PATIENT
  Age: 67 Year
  Sex: Male
  Weight: 72 kg

DRUGS (18)
  1. AMOXICILLIN [Suspect]
     Active Substance: AMOXICILLIN
     Indication: Antibiotic prophylaxis
     Dosage: 3.0 GRAM(S) (1 GRAM(S), 3 IN 1 DAY)
     Route: 065
     Dates: start: 20230822, end: 20230825
  2. ATORVASTATIN [Suspect]
     Active Substance: ATORVASTATIN
     Indication: Product used for unknown indication
     Dosage: 40.0 MILLIGRAM(S) (40 MILLIGRAM(S), 1 IN 1 DAY)
     Route: 065
  3. ATORVASTATIN [Suspect]
     Active Substance: ATORVASTATIN
     Dosage: NOCTE
     Route: 065
  4. CYCLIZINE [Suspect]
     Active Substance: CYCLIZINE
     Indication: Product used for unknown indication
     Dosage: 50 MG
     Route: 042
  5. ENOXAPARIN [Suspect]
     Active Substance: ENOXAPARIN
     Indication: Product used for unknown indication
     Dosage: 40 MG
     Route: 058
     Dates: start: 20230822, end: 20230829
  6. METRONIDAZOLE [Suspect]
     Active Substance: METRONIDAZOLE
     Indication: Product used for unknown indication
     Dosage: 150.0 MILLIGRAM(S) (50 MILLIGRAM(S), 3 IN 1 DAY)
     Route: 065
     Dates: start: 20230822, end: 20230826
  7. OMEPRAZOLE [Suspect]
     Active Substance: OMEPRAZOLE
     Indication: Product used for unknown indication
     Dosage: 20.0 MILLIGRAM(S) (20 MILLIGRAM(S), 1 IN 1 DAY)
     Route: 065
     Dates: start: 20230823, end: 20230825
  8. ONDANSETRON [Suspect]
     Active Substance: ONDANSETRON
     Indication: Product used for unknown indication
     Dosage: 4 MG
     Route: 065
  9. ACETAMINOPHEN [Suspect]
     Active Substance: ACETAMINOPHEN
     Route: 065
  10. ACETAMINOPHEN [Suspect]
     Active Substance: ACETAMINOPHEN
     Route: 065
  11. ACETAMINOPHEN [Suspect]
     Active Substance: ACETAMINOPHEN
     Indication: Product used for unknown indication
     Dosage: UNK
     Route: 065
  12. PROPOFOL [Suspect]
     Active Substance: PROPOFOL
     Indication: Anaesthesia
     Dosage: UNK
     Route: 065
     Dates: start: 20230822
  13. AMOXICILLIN\CLAVULANATE POTASSIUM [Concomitant]
     Active Substance: AMOXICILLIN\CLAVULANATE POTASSIUM
     Indication: Antibiotic prophylaxis
     Dosage: UNK
     Route: 065
     Dates: start: 20230826, end: 20230827
  14. AMOXICILLIN\CLAVULANATE POTASSIUM [Concomitant]
     Active Substance: AMOXICILLIN\CLAVULANATE POTASSIUM
     Indication: Antibiotic prophylaxis
  15. GENTAMICIN [Concomitant]
     Active Substance: GENTAMICIN
     Indication: Antibiotic prophylaxis
     Dosage: UNK
     Route: 065
     Dates: start: 20230822, end: 20230826
  16. INSULIN HUMAN [Concomitant]
     Active Substance: INSULIN HUMAN
     Indication: Product used for unknown indication
     Dosage: UNK
     Route: 065
     Dates: start: 20230822, end: 20230901
  17. MORPHINE [Concomitant]
     Active Substance: MORPHINE
     Indication: Product used for unknown indication
     Dosage: UNK
     Route: 065
  18. PIPERACILLIN AND TAZOBACTAM [Concomitant]
     Active Substance: PIPERACILLIN SODIUM\TAZOBACTAM SODIUM
     Indication: Product used for unknown indication
     Dosage: UNK
     Route: 065

REACTIONS (1)
  - Acute hepatic failure [Fatal]

NARRATIVE: CASE EVENT DATE: 20230827
